FAERS Safety Report 6480624-0 (Version None)
Quarter: 2009Q4

REPORT INFORMATION
  Report Type: 
  Country: None (occurrence: None)
  Receive Date: 20091202
  Receipt Date: 20091119
  Transmission Date: 20100525
  Serious: Yes (Hospitalization)
  Sender: FDA-Public Use
  Company Number: 232205J09USA

PATIENT
  Age: 45 Year
  Sex: Female
  Weight: 100 kg

DRUGS (5)
  1. REBIF [Suspect]
     Indication: MULTIPLE SCLEROSIS
     Dosage: 44 MCG, 3 IN 1 WEEKS, SUBCUTANEOUS
     Route: 058
     Dates: start: 20050101
  2. LISINOPRIL [Concomitant]
  3. DILTIAZEM [Concomitant]
  4. ZOCOR [Concomitant]
  5. LEXAPRO [Concomitant]

REACTIONS (1)
  - IMPAIRED GASTRIC EMPTYING [None]
